FAERS Safety Report 23302047 (Version 1)
Quarter: 2023Q4

REPORT INFORMATION
  Report Type: Spontaneous
  Country: US (occurrence: None)
  Receive Date: 20231214
  Receipt Date: 20231214
  Transmission Date: 20240110
  Serious: Yes (Hospitalization)
  Sender: FDA-Public Use
  Company Number: None

PATIENT
  Age: 64 Year
  Sex: Female

DRUGS (1)
  1. BRAFTOVI [Suspect]
     Active Substance: ENCORAFENIB
     Dosage: 6 CAPS QD ORAL
     Route: 048

REACTIONS (2)
  - Gastrointestinal disorder [None]
  - Therapy cessation [None]

NARRATIVE: CASE EVENT DATE: 20231206
